FAERS Safety Report 15480440 (Version 1)
Quarter: 2018Q4

REPORT INFORMATION
  Report Type: Spontaneous
  Country: FR (occurrence: FR)
  Receive Date: 20181009
  Receipt Date: 20181009
  Transmission Date: 20190205
  Serious: Yes (Other)
  Sender: FDA-Public Use
  Company Number: FR-BRISTOL-MYERS SQUIBB COMPANY-BMS-2018-091988

PATIENT
  Age: 90 Year
  Sex: Male
  Weight: 79.2 kg

DRUGS (2)
  1. AZACTAM [Suspect]
     Active Substance: AZTREONAM
     Indication: INFECTION
     Dosage: 6 G, UNK
     Route: 042
  2. METRONIDAZOLE. [Suspect]
     Active Substance: METRONIDAZOLE
     Indication: INFECTION
     Route: 042

REACTIONS (2)
  - Psychotic disorder [Recovered/Resolved]
  - Confusional state [Recovered/Resolved]

NARRATIVE: CASE EVENT DATE: 20180820
